FAERS Safety Report 8791682 (Version 2)
Quarter: 2012Q4

REPORT INFORMATION
  Report Type: Report from Study
  Country: CA (occurrence: CA)
  Receive Date: 20120918
  Receipt Date: 20121109
  Transmission Date: 20130627
  Serious: Yes (Life-Threatening, Hospitalization, Disabling)
  Sender: FDA-Public Use
  Company Number: CA-PFIZER INC-2012225460

PATIENT
  Age: 60 Year
  Sex: Male
  Weight: 108 kg

DRUGS (5)
  1. DOXORUBICIN HCL [Suspect]
     Indication: DIFFUSE LARGE B-CELL LYMPHOMA
     Dosage: 118 mg, every 3 weeks
     Route: 042
     Dates: start: 20111205
  2. VINCRISTINE SULFATE [Suspect]
     Indication: DIFFUSE LARGE B-CELL LYMPHOMA
     Dosage: 2 mg, 1 in 3 wk
     Route: 040
     Dates: start: 20111205
  3. RO5072759 [Suspect]
     Indication: DIFFUSE LARGE B-CELL LYMPHOMA
     Dosage: 1000 ml, every 3 weeks
     Route: 042
     Dates: start: 20111205
  4. PREDNISOLONE [Suspect]
     Indication: DIFFUSE LARGE B-CELL LYMPHOMA
     Dosage: 100 mg, every 3 weeks
     Route: 048
     Dates: start: 20111205
  5. CYCLOPHOSPHAMIDE [Suspect]
     Indication: DIFFUSE LARGE B-CELL LYMPHOMA
     Dosage: 1770 mg, every 3 weeks
     Route: 042
     Dates: start: 20111205

REACTIONS (13)
  - Acute myocardial infarction [Not Recovered/Not Resolved]
  - Cytotoxic cardiomyopathy [Not Recovered/Not Resolved]
  - Fatigue [Recovering/Resolving]
  - Chills [Recovering/Resolving]
  - Febrile neutropenia [Recovered/Resolved]
  - White blood cell count decreased [Recovered/Resolved]
  - Hypotension [Recovered/Resolved]
  - Pyrexia [Recovered/Resolved]
  - Constipation [Not Recovered/Not Resolved]
  - Adrenal insufficiency [Recovered/Resolved]
  - Cellulitis [Not Recovered/Not Resolved]
  - Pyrexia [Recovered/Resolved]
  - Acute myocardial infarction [Not Recovered/Not Resolved]
